FAERS Safety Report 8874586 (Version 2)
Quarter: 2012Q4

REPORT INFORMATION
  Report Type: 
  Country: US (occurrence: US)
  Receive Date: 20121031
  Receipt Date: 20121127
  Transmission Date: 20130627
  Serious: Yes (Other)
  Sender: FDA-Public Use
  Company Number: US-JNJFOC-20121012946

PATIENT
  Age: 76 None
  Sex: Female
  Weight: 82.56 kg

DRUGS (11)
  1. SANDOZ FENTANYL TRANSDERMAL SYSTEM [Suspect]
     Indication: BACK PAIN
     Route: 062
     Dates: start: 2012
  2. SANDOZ FENTANYL TRANSDERMAL SYSTEM [Suspect]
     Indication: BACK PAIN
     Dosage: NDC 0781-7243-55
     Route: 062
     Dates: start: 2009, end: 2012
  3. SANDOZ FENTANYL TRANSDERMAL SYSTEM [Suspect]
     Indication: BACK PAIN
     Route: 062
     Dates: start: 2012, end: 2012
  4. LYRICA [Suspect]
     Indication: HERPES ZOSTER
     Route: 048
     Dates: start: 2012, end: 2012
  5. SINEMET [Concomitant]
     Indication: PARKINSON^S DISEASE
     Dosage: combination dose of 25 mg and 250 mg
     Route: 048
  6. PROTONIX [Concomitant]
     Indication: ULCER
     Route: 048
  7. LANTUS [Concomitant]
     Indication: DIABETES MELLITUS
     Route: 058
  8. CARDIZEM [Concomitant]
     Indication: CARDIAC FAILURE CONGESTIVE
     Route: 048
  9. LANOXIN [Concomitant]
     Indication: CARDIAC FAILURE CONGESTIVE
     Route: 048
  10. FOLIC ACID [Concomitant]
     Indication: ULCER
     Route: 065
  11. EXELON [Concomitant]
     Indication: PARKINSON^S DISEASE
     Route: 048

REACTIONS (8)
  - Cataract [Recovered/Resolved]
  - Eye inflammation [Not Recovered/Not Resolved]
  - Hallucination [Recovered/Resolved]
  - Herpes zoster [Recovered/Resolved]
  - Product quality issue [Not Recovered/Not Resolved]
  - Constipation [Not Recovered/Not Resolved]
  - Wrong technique in drug usage process [Not Recovered/Not Resolved]
  - Product quality issue [Unknown]
